FAERS Safety Report 5048201-6 (Version None)
Quarter: 2006Q3

REPORT INFORMATION
  Report Type: 
  Country: None (occurrence: None)
  Receive Date: 20060711
  Receipt Date: 20060704
  Transmission Date: 20061208
  Serious: Yes (Disabling)
  Sender: FDA-Public Use
  Company Number: RU-ROCHE-453863

PATIENT
  Age: 75 Year
  Sex: Male

DRUGS (3)
  1. XELODA [Suspect]
     Indication: COLORECTAL CANCER
     Route: 048
     Dates: start: 20060701, end: 20060701
  2. XELODA [Suspect]
     Route: 048
     Dates: start: 20060702, end: 20060702
  3. XELODA [Suspect]
     Dosage: DRUG WAS DECHALLENGED AFTER 18 TABLETS WERE TAKEN.
     Route: 048
     Dates: start: 20060703, end: 20060703

REACTIONS (3)
  - ABASIA [None]
  - ASTHENIA [None]
  - CEREBROVASCULAR ACCIDENT [None]
